FAERS Safety Report 9525558 (Version 1)
Quarter: 2013Q3

REPORT INFORMATION
  Report Type: Spontaneous
  Country: US (occurrence: None)
  Receive Date: 20130913
  Receipt Date: 20130913
  Transmission Date: 20140515
  Serious: Yes (Hospitalization)
  Sender: FDA-Public Use
  Company Number: 2013CT000032

PATIENT
  Age: 44 Year
  Sex: Female
  Weight: 79.38 kg

DRUGS (9)
  1. KORLYM [Suspect]
     Indication: CUSHING^S SYNDROME
     Dosage: 300 MG; QD; PO
     Route: 048
     Dates: start: 2012
  2. SERTRALINE [Concomitant]
  3. FEOSOL [Concomitant]
  4. ACIPHEX [Concomitant]
  5. DIPHENHYDRAMINE [Concomitant]
  6. SYNTHROID [Concomitant]
  7. OXYCODONE [Concomitant]
  8. CIPROFLOXACIN [Concomitant]
  9. METRONIDAZOLE [Concomitant]

REACTIONS (12)
  - Diverticulitis [None]
  - Pain [None]
  - Paraesthesia [None]
  - Abdominal pain upper [None]
  - Vomiting [None]
  - Abdominal pain [None]
  - Anxiety [None]
  - Hypoaesthesia [None]
  - Blood potassium decreased [None]
  - Arthralgia [None]
  - Back pain [None]
  - Hypoaesthesia [None]
